FAERS Safety Report 7389810-9 (Version None)
Quarter: 2011Q2

REPORT INFORMATION
  Report Type: 
  Country: None (occurrence: None)
  Receive Date: 20110401
  Receipt Date: 20110318
  Transmission Date: 20111010
  Serious: Yes (Other)
  Sender: FDA-Public Use
  Company Number: US-ELI_LILLY_AND_COMPANY-US201102001287

PATIENT
  Sex: Female

DRUGS (8)
  1. VITAMIN D [Concomitant]
  2. PLAVIX [Concomitant]
  3. FORTEO [Suspect]
     Indication: OSTEOPOROSIS
     Dosage: 20 UG, DAILY (1/D)
     Dates: start: 20040101, end: 20060101
  4. CALCIUM [Concomitant]
  5. NORVASC [Concomitant]
  6. ZOCOR [Concomitant]
  7. MULTI-VITAMIN [Concomitant]
  8. FORTEO [Suspect]
     Dosage: 20 UG, DAILY (1/D)
     Dates: start: 20100701, end: 20110101

REACTIONS (6)
  - BONE DENSITY ABNORMAL [None]
  - SMALL CELL LUNG CANCER LIMITED STAGE [None]
  - COMPRESSION FRACTURE [None]
  - INCORRECT DRUG ADMINISTRATION DURATION [None]
  - BLOOD CALCIUM INCREASED [None]
  - BACK PAIN [None]
